FAERS Safety Report 20155406 (Version 1)
Quarter: 2021Q4

REPORT INFORMATION
  Report Type: Spontaneous
  Country: US (occurrence: US)
  Receive Date: 20211207
  Receipt Date: 20211207
  Transmission Date: 20220303
  Serious: No
  Sender: FDA-Public Use
  Company Number: US-drreddys-SPO/USA/21/0144416

PATIENT
  Age: 84 Year
  Sex: Female
  Weight: 49.95 kg

DRUGS (3)
  1. IBANDRONATE SODIUM [Suspect]
     Active Substance: IBANDRONATE SODIUM
     Indication: Bone disorder
     Dates: start: 202111, end: 20211201
  2. THYROID PILLS [Concomitant]
     Indication: Product used for unknown indication
  3. UNSPECIFIED INGREDIENT [Concomitant]
     Active Substance: UNSPECIFIED INGREDIENT
     Indication: Product used for unknown indication

REACTIONS (6)
  - Gait disturbance [Unknown]
  - Feeling abnormal [Unknown]
  - Back pain [Unknown]
  - Abdominal pain upper [Unknown]
  - Diarrhoea [Unknown]
  - Product dose omission issue [Unknown]
